FAERS Safety Report 9605648 (Version 1)
Quarter: 2013Q4

REPORT INFORMATION
  Report Type: Spontaneous
  Country: IT (occurrence: IT)
  Receive Date: 20131008
  Receipt Date: 20131008
  Transmission Date: 20140711
  Serious: Yes (Hospitalization)
  Sender: FDA-Public Use
  Company Number: IT-TEVA-435265ISR

PATIENT
  Age: 73 Year
  Sex: Female

DRUGS (1)
  1. METOTREXATO [Suspect]
     Indication: RHEUMATOID ARTHRITIS
     Route: 030
     Dates: start: 20080101, end: 20130809

REACTIONS (1)
  - Haemorrhage intracranial [Recovering/Resolving]
